FAERS Safety Report 16118480 (Version 2)
Quarter: 2019Q2

REPORT INFORMATION
  Report Type: Spontaneous
  Country: US (occurrence: US)
  Receive Date: 20190326
  Receipt Date: 20190528
  Transmission Date: 20190711
  Serious: No
  Sender: FDA-Public Use
  Company Number: US-TEVA-2019-US-1031762

PATIENT
  Sex: Female

DRUGS (1)
  1. AJOVY [Suspect]
     Active Substance: FREMANEZUMAB-VFRM
     Dosage: AJOVY MONTHLY DOSE TAKEN 3 TIMES (3 DOSES) ENDED LAST DOSE ABOUT 3 WEEKS AGO
     Route: 065

REACTIONS (2)
  - Rash [Recovering/Resolving]
  - Rash generalised [Recovering/Resolving]
